FAERS Safety Report 6197040-1 (Version None)
Quarter: 2009Q2

REPORT INFORMATION
  Report Type: 
  Country: None (occurrence: None)
  Receive Date: 20090520
  Receipt Date: 20090514
  Transmission Date: 20091009
  Serious: Yes (Other)
  Sender: FDA-Public Use
  Company Number: US-ABBOTT-09P-163-0573496-00

PATIENT
  Sex: Female
  Weight: 65.376 kg

DRUGS (2)
  1. HUMIRA [Suspect]
     Indication: RHEUMATOID ARTHRITIS
     Dates: start: 20070101, end: 20090404
  2. BIRTH CONTROL PILLS [Concomitant]
     Indication: CONTRACEPTION

REACTIONS (5)
  - CYST [None]
  - FATIGUE [None]
  - RHEUMATOID ARTHRITIS [None]
  - SINUSITIS [None]
  - SKIN INFECTION [None]
